FAERS Safety Report 22121210 (Version 1)
Quarter: 2023Q1

REPORT INFORMATION
  Report Type: Spontaneous
  Country: CN (occurrence: CN)
  Receive Date: 20230321
  Receipt Date: 20230321
  Transmission Date: 20230417
  Serious: Yes (Hospitalization, Disabling, Other)
  Sender: FDA-Public Use
  Company Number: CN-009507513-2303CHN006167

PATIENT
  Age: 59 Year
  Sex: Male
  Weight: 58 kg

DRUGS (7)
  1. KEYTRUDA [Suspect]
     Active Substance: PEMBROLIZUMAB
     Indication: Lung neoplasm malignant
     Dosage: 200 MILLIGRAM, FREQUENCY: REPORTED AS ONCE
     Route: 041
     Dates: start: 20230213, end: 20230213
  2. CARBOPLATIN [Suspect]
     Active Substance: CARBOPLATIN
     Indication: Lung neoplasm malignant
     Dosage: 0.6 GRAM, FREQUENCY: REPORTED AS ONCE
     Route: 041
     Dates: start: 20230214, end: 20230214
  3. PACLITAXEL [Suspect]
     Active Substance: PACLITAXEL
     Indication: Lung neoplasm malignant
     Dosage: 200 MILLIGRAM, FREQUENCY REPORTED AS TWICE EVERY 8 DAYS
     Route: 041
     Dates: start: 20230213, end: 20230220
  4. SODIUM CHLORIDE [Concomitant]
     Active Substance: SODIUM CHLORIDE
     Indication: Medication dilution
     Dosage: 100 MILLILITER, ONCE
     Route: 041
     Dates: start: 20230213, end: 20230213
  5. SODIUM CHLORIDE [Concomitant]
     Active Substance: SODIUM CHLORIDE
     Dosage: 100 MILLILITER, ONCE
     Route: 041
     Dates: start: 20230213, end: 20230213
  6. SODIUM CHLORIDE [Concomitant]
     Active Substance: SODIUM CHLORIDE
     Dosage: 100 MILLILITER, ONCE
     Route: 041
     Dates: start: 20230220, end: 20230220
  7. DEXTROSE [Concomitant]
     Active Substance: DEXTROSE
     Indication: Medication dilution
     Dosage: 500 MILLILITER, QD
     Route: 041
     Dates: start: 20230214, end: 20230214

REACTIONS (1)
  - Myelosuppression [Recovering/Resolving]

NARRATIVE: CASE EVENT DATE: 20230227
